FAERS Safety Report 7433581-4 (Version None)
Quarter: 2011Q2

REPORT INFORMATION
  Report Type: 
  Country: None (occurrence: None)
  Receive Date: 20110422
  Receipt Date: 20110412
  Transmission Date: 20111010
  Serious: Yes (Hospitalization)
  Sender: FDA-Public Use
  Company Number: AT-GILEAD-2011-0038482

PATIENT
  Sex: Male
  Weight: 62 kg

DRUGS (3)
  1. ATAZANAVIR [Suspect]
     Indication: HIV INFECTION
     Route: 048
     Dates: start: 20101019, end: 20110412
  2. GS-9350 [Suspect]
     Indication: HIV INFECTION
     Route: 048
     Dates: start: 20101019, end: 20110412
  3. TRUVADA [Suspect]
     Indication: HIV INFECTION
     Route: 048
     Dates: start: 20101019, end: 20110412

REACTIONS (3)
  - NEPHROPATHY [None]
  - INFECTION [None]
  - DIABETES MELLITUS [None]
